FAERS Safety Report 4372341-8 (Version None)
Quarter: 2004Q2

REPORT INFORMATION
  Report Type: 
  Country: None (occurrence: None)
  Receive Date: 20040526
  Receipt Date: 20040514
  Transmission Date: 20050107
  Serious: Yes (Other)
  Sender: FDA-Public Use
  Company Number: 2004213815CA

PATIENT
  Age: 25 Year
  Sex: Female
  Weight: 63.5 kg

DRUGS (3)
  1. DEPO-PROVERA [Suspect]
     Indication: CONTRACEPTION
     Dosage: 150 MG, SINGLE INJECTION, INTRAMUSCULAR
     Route: 030
     Dates: start: 20030707, end: 20030707
  2. VENTOLIN [Concomitant]
  3. FLOVENT [Concomitant]

REACTIONS (2)
  - ABORTION SPONTANEOUS [None]
  - DRUG EXPOSURE DURING PREGNANCY [None]
